FAERS Safety Report 6621643-0 (Version None)
Quarter: 2010Q1

REPORT INFORMATION
  Report Type: 
  Country: None (occurrence: None)
  Receive Date: 20100223
  Receipt Date: 20100104
  Transmission Date: 20100710
  Serious: Yes (Other)
  Sender: FDA-Public Use
  Company Number: 004008

PATIENT
  Sex: Female
  Weight: 45.3 kg

DRUGS (7)
  1. CIMZIA [Suspect]
     Indication: CROHN'S DISEASE
     Dosage: (400 MG MONTHLY SUBCUTANEOUS)
     Route: 058
     Dates: start: 20090101
  2. CALCIUM [Concomitant]
  3. MAGNESIUM [Concomitant]
  4. MULTI-VITAMINS [Concomitant]
  5. CALCARB WITH VITAMIN D [Concomitant]
  6. FORTEO [Concomitant]
  7. PRILOSEC [Concomitant]

REACTIONS (5)
  - APHONIA [None]
  - BRONCHITIS [None]
  - CANDIDIASIS [None]
  - CHILLS [None]
  - TONGUE ULCERATION [None]
